FAERS Safety Report 18186994 (Version 1)
Quarter: 2020Q3

REPORT INFORMATION
  Report Type: Spontaneous
  Country: US (occurrence: US)
  Receive Date: 20200823
  Receipt Date: 20200823
  Transmission Date: 20201103
  Serious: No
  Sender: FDA-Public Use
  Company Number: None

PATIENT
  Age: 65 Year
  Sex: Female
  Weight: 122 kg

DRUGS (14)
  1. REQUIP [Concomitant]
     Active Substance: ROPINIROLE HYDROCHLORIDE
  2. REMDESIVIR. [Suspect]
     Active Substance: REMDESIVIR
     Indication: COVID-19
     Route: 042
     Dates: start: 20200723, end: 20200823
  3. REMDESIVIR. [Suspect]
     Active Substance: REMDESIVIR
     Indication: COVID-19
     Dosage: TREATMENT DATES: 24?AUG?2020?24?AUG?2020
     Route: 042
  4. LOSARTAN. [Concomitant]
     Active Substance: LOSARTAN
  5. POTASSIUM CHLORIDE. [Concomitant]
     Active Substance: POTASSIUM CHLORIDE
  6. THEOPHYLLINE [Concomitant]
     Active Substance: THEOPHYLLINE ANHYDROUS
  7. ACETAMINOPHEN. [Concomitant]
     Active Substance: ACETAMINOPHEN
  8. AMLODIPINE [Concomitant]
     Active Substance: AMLODIPINE BESYLATE
  9. ASPIRIN. [Concomitant]
     Active Substance: ASPIRIN
  10. ENOXAPARIN [Concomitant]
     Active Substance: ENOXAPARIN
  11. ALBUTEROL INHALER [Concomitant]
     Active Substance: ALBUTEROL
  12. METOPROLOL. [Concomitant]
     Active Substance: METOPROLOL
  13. ATORVASTATIN [Concomitant]
     Active Substance: ATORVASTATIN
  14. SYMBICORT [Concomitant]
     Active Substance: BUDESONIDE\FORMOTEROL FUMARATE DIHYDRATE

REACTIONS (1)
  - Diarrhoea [None]

NARRATIVE: CASE EVENT DATE: 20200724
